FAERS Safety Report 12504022 (Version 1)
Quarter: 2016Q2

REPORT INFORMATION
  Report Type: Spontaneous
  Country: US (occurrence: US)
  Receive Date: 20160628
  Receipt Date: 20160628
  Transmission Date: 20160815
  Serious: No
  Sender: FDA-Public Use
  Company Number: US-BEH-2016070378

PATIENT
  Age: 60 Year
  Sex: Female
  Weight: 67.12 kg

DRUGS (22)
  1. MULTIVITAMIN                       /00097801/ [Concomitant]
     Active Substance: VITAMINS
  2. EXCEDRIN [Concomitant]
     Active Substance: ACETAMINOPHEN\ASPIRIN\CAFFEINE
  3. VITAMIN D                          /00107901/ [Concomitant]
     Active Substance: ERGOCALCIFEROL
  4. ACTOS [Concomitant]
     Active Substance: PIOGLITAZONE HYDROCHLORIDE
  5. ZEMAIRA [Suspect]
     Active Substance: .ALPHA.1-PROTEINASE INHIBITOR HUMAN
     Indication: ALPHA-1 ANTI-TRYPSIN DEFICIENCY
     Dosage: 70 MG/KG, QW (971 MG VIAL)
     Route: 042
  6. EVISTA [Concomitant]
     Active Substance: RALOXIFENE HYDROCHLORIDE
  7. EPIPEN [Concomitant]
     Active Substance: EPINEPHRINE
  8. METFORMIN [Concomitant]
     Active Substance: METFORMIN HYDROCHLORIDE
  9. VICTOZA [Concomitant]
     Active Substance: LIRAGLUTIDE
  10. VITAMIN B [Concomitant]
     Active Substance: VITAMIN B
  11. ATROVENT [Concomitant]
     Active Substance: IPRATROPIUM BROMIDE
  12. PROBIOTIC                          /06395501/ [Concomitant]
     Active Substance: BIFIDOBACTERIUM ANIMALIS SUBSP. LACTIS
  13. ZYRTEC [Concomitant]
     Active Substance: CETIRIZINE HYDROCHLORIDE
  14. ZEMAIRA [Suspect]
     Active Substance: .ALPHA.1-PROTEINASE INHIBITOR HUMAN
     Dosage: UNK
     Route: 042
     Dates: start: 20150805
  15. AUGMENTIN [Concomitant]
     Active Substance: AMOXICILLIN\CLAVULANATE POTASSIUM
  16. LANTUS [Concomitant]
     Active Substance: INSULIN GLARGINE
  17. DIPHENHYDRAMINE. [Concomitant]
     Active Substance: DIPHENHYDRAMINE
  18. NORMAL SALINE [Concomitant]
     Active Substance: SODIUM CHLORIDE
  19. OMEPRAZOLE. [Concomitant]
     Active Substance: OMEPRAZOLE
  20. LIDOCAINE. [Concomitant]
     Active Substance: LIDOCAINE
  21. SODIUM CHLORIDE. [Concomitant]
     Active Substance: SODIUM CHLORIDE
  22. ZINC [Concomitant]
     Active Substance: ZINC\ZINC CHLORIDE

REACTIONS (2)
  - Bronchitis [Unknown]
  - Haemoptysis [Unknown]

NARRATIVE: CASE EVENT DATE: 20160113
